FAERS Safety Report 8222747-1 (Version None)
Quarter: 2012Q1

REPORT INFORMATION
  Report Type: 
  Country: None (occurrence: None)
  Receive Date: 20120320
  Receipt Date: 20120316
  Transmission Date: 20120608
  Serious: Yes (Death, Hospitalization, Other)
  Sender: FDA-Public Use
  Company Number: JP-GENZYME-THYM-1002555

PATIENT
  Sex: Male
  Weight: 53 kg

DRUGS (58)
  1. ETOPOSIDE [Concomitant]
     Indication: EWING'S SARCOMA RECURRENT
     Dosage: UNK
     Dates: start: 20090803, end: 20090805
  2. CYCLOPHOSPHAMIDE MONOHYDRATE [Concomitant]
     Dosage: UNK
     Dates: start: 20091120, end: 20091121
  3. HYDROCORTISONE SODIUM SUCCINATE [Concomitant]
     Indication: PROPHYLAXIS OF NAUSEA AND VOMITING
     Dosage: UNK
     Dates: start: 20100204, end: 20100212
  4. CEFTRIAXONE [Concomitant]
     Indication: INFECTION PROPHYLAXIS
     Dosage: UNK
     Dates: start: 20100228, end: 20100301
  5. URSODIOL [Concomitant]
     Indication: PROPHYLAXIS
     Dosage: UNK
     Dates: start: 20100205, end: 20100430
  6. PREDNISOLONE [Concomitant]
     Dosage: UNK
     Dates: start: 20100711
  7. PREDNISOLONE [Concomitant]
     Dosage: UNK
     Route: 065
     Dates: start: 20100907, end: 20101111
  8. IFOSFAMIDE [Concomitant]
     Dosage: UNK
     Dates: start: 20090924, end: 20090926
  9. GRANISETRON HCL [Concomitant]
     Indication: PROPHYLAXIS OF NAUSEA AND VOMITING
     Dosage: UNK
     Dates: start: 20100204, end: 20100314
  10. HYDROCORTISONE SODIUM SUCCINATE [Concomitant]
     Indication: PREMEDICATION
  11. MICAFUNGIN SODIUM [Concomitant]
     Indication: INFECTION PROPHYLAXIS
     Dosage: UNK
     Dates: start: 20100204, end: 20100331
  12. METHOTREXATE [Concomitant]
     Indication: PROPHYLAXIS AGAINST GRAFT VERSUS HOST DISEASE
     Dosage: UNK
     Dates: start: 20100214, end: 20100214
  13. METHOTREXATE [Concomitant]
     Dosage: UNK
     Dates: start: 20100218, end: 20100218
  14. PLATELETS, CONCENTRATED [Concomitant]
     Dosage: UNK
     Dates: start: 20100308, end: 20100308
  15. ETOPOSIDE [Concomitant]
     Dosage: UNK
     Dates: start: 20090824, end: 20090926
  16. MELPHALAN HYDROCHLORIDE [Concomitant]
     Indication: BONE MARROW CONDITIONING REGIMEN
     Dosage: UNK
     Dates: start: 20100209, end: 20100210
  17. PREDNISOLONE ACETATE [Concomitant]
     Indication: PROPHYLAXIS AGAINST GRAFT VERSUS HOST DISEASE
     Dosage: UNK
     Dates: start: 20100212, end: 20100326
  18. VANCOMYCIN HYDROCHLORIDE [Concomitant]
     Indication: INFECTION PROPHYLAXIS
     Dosage: UNK
     Dates: start: 20100204, end: 20100305
  19. POLYMYXIN B SULFATE [Concomitant]
     Indication: INFECTION PROPHYLAXIS
     Dosage: UNK
     Dates: start: 20100204, end: 20100305
  20. ITRACONAZOL A [Concomitant]
     Indication: PROPHYLAXIS AGAINST GRAFT VERSUS HOST DISEASE
     Dosage: UNK
     Route: 065
     Dates: start: 20100401, end: 20110114
  21. ITRACONAZOL A [Concomitant]
     Indication: INFECTION PROPHYLAXIS
  22. PLATELETS, CONCENTRATED [Concomitant]
     Dosage: UNK
     Dates: start: 20100217, end: 20100219
  23. PLATELETS, CONCENTRATED [Concomitant]
     Dosage: UNK
     Dates: start: 20100221, end: 20100224
  24. PLATELETS, CONCENTRATED [Concomitant]
     Dosage: UNK
     Dates: start: 20100227, end: 20100227
  25. IFOSFAMIDE [Concomitant]
     Indication: EWING'S SARCOMA RECURRENT
     Dosage: UNK
     Dates: start: 20090803, end: 20090805
  26. DALTEPARIN SODIUM [Concomitant]
     Indication: PROPHYLAXIS
     Dosage: UNK
     Dates: start: 20100204, end: 20100330
  27. TACROLIMUS [Concomitant]
     Indication: PROPHYLAXIS AGAINST GRAFT VERSUS HOST DISEASE
     Dosage: UNK
     Dates: start: 20100211, end: 20100225
  28. TACROLIMUS [Concomitant]
     Dosage: UNK
     Dates: start: 20100226, end: 20100623
  29. ZOVIRAX [Concomitant]
     Indication: INFECTION PROPHYLAXIS
     Dosage: UNK
     Dates: start: 20100205, end: 20100321
  30. ETHYL ICOSAPENTATE [Concomitant]
     Indication: PROPHYLAXIS
     Dosage: UNK
     Dates: start: 20100205, end: 20100430
  31. THYMOGLOBULIN [Suspect]
     Indication: BONE MARROW CONDITIONING REGIMEN
     Dosage: 66 MG, QD
     Route: 042
     Dates: start: 20100210, end: 20100211
  32. PIRARUBICIN HYDROCHLORIDE [Concomitant]
     Dosage: UNK
     Dates: start: 20090925, end: 20090925
  33. CARBOPLATIN [Concomitant]
     Dosage: UNK
     Dates: start: 20090828, end: 20090828
  34. GLYCYRRHIZIN GLYCINE CYTEINE COMBINED [Concomitant]
     Indication: PROPHYLAXIS
     Dosage: UNK
     Dates: start: 20100204, end: 20100401
  35. METHYLPREDNISOLONE SODIUM SUCCINATE [Concomitant]
     Indication: PREMEDICATION
     Dosage: UNK
     Dates: start: 20100210, end: 20100211
  36. FILGRASTIM [Concomitant]
     Indication: WHITE BLOOD CELL COUNT
     Dosage: UNK
     Dates: start: 20100213, end: 20100226
  37. FLUCONAL [Concomitant]
     Indication: INFECTION PROPHYLAXIS
     Dosage: UNK
     Dates: start: 20100205, end: 20100402
  38. PREDNISOLONE [Concomitant]
     Indication: PROPHYLAXIS AGAINST GRAFT VERSUS HOST DISEASE
     Dosage: UNK
     Dates: start: 20100225, end: 20100723
  39. PLATELETS, CONCENTRATED [Concomitant]
     Dosage: UNK
     Dates: start: 20100726, end: 20100727
  40. PIRARUBICIN HYDROCHLORIDE [Concomitant]
     Indication: EWING'S SARCOMA RECURRENT
     Dosage: UNK
     Dates: start: 20090804, end: 20090804
  41. VINCRISTINE SULFATE [Concomitant]
     Indication: EWING'S SARCOMA RECURRENT
     Dosage: UNK
     Dates: start: 20091026, end: 20091028
  42. FAMOTIDINE [Concomitant]
     Indication: HAEMORRHAGE PROPHYLAXIS
     Dosage: UNK
     Dates: start: 20100204, end: 20100303
  43. PIPERACILLIN SODIUM [Concomitant]
     Indication: INFECTION PROPHYLAXIS
     Dosage: UNK
     Dates: start: 20100204, end: 20100216
  44. SULFAMETHOPRIM [Concomitant]
     Indication: INFECTION PROPHYLAXIS
     Dosage: UNK
     Route: 065
     Dates: start: 20100205, end: 20110121
  45. IFOSFAMIDE [Concomitant]
     Dosage: UNK
     Dates: start: 20090826, end: 20090828
  46. PIRARUBICIN HYDROCHLORIDE [Concomitant]
     Dosage: UNK
     Dates: start: 20090827, end: 20090827
  47. CARBOPLATIN [Concomitant]
     Dosage: UNK
     Dates: start: 20090926, end: 20090926
  48. IMIPEM [Concomitant]
     Indication: INFECTION PROPHYLAXIS
     Dosage: UNK
     Dates: start: 20100217, end: 20100222
  49. CEFTRIAXONE [Concomitant]
     Dosage: UNK
     Dates: start: 20100806, end: 20100807
  50. FLUDARA [Suspect]
     Indication: BONE MARROW CONDITIONING REGIMEN
     Dosage: UNK
     Route: 065
     Dates: start: 20100204, end: 20100208
  51. CARBOPLATIN [Concomitant]
     Indication: EWING'S SARCOMA RECURRENT
     Dosage: UNK
     Dates: start: 20090805, end: 20090805
  52. VINCRISTINE SULFATE [Concomitant]
     Dosage: UNK
     Dates: start: 20091120, end: 20091121
  53. CYCLOPHOSPHAMIDE MONOHYDRATE [Concomitant]
     Indication: EWING'S SARCOMA RECURRENT
     Dosage: UNK
     Dates: start: 20091026, end: 20091027
  54. GLUTATHIONE [Concomitant]
     Indication: PROPHYLAXIS
     Dosage: UNK
     Dates: start: 20100204, end: 20100401
  55. MICAFUNGIN SODIUM [Concomitant]
     Dosage: UNK
     Dates: start: 20100808
  56. HYDROXYZINE HYDROCHLORIDE [Concomitant]
     Indication: PREMEDICATION
     Dosage: UNK
     Dates: start: 20100210, end: 20100806
  57. PLATELETS, CONCENTRATED [Concomitant]
     Indication: EWING'S SARCOMA RECURRENT
     Dosage: UNK
     Dates: start: 20100214, end: 20100215
  58. PLATELETS, CONCENTRATED [Concomitant]
     Dosage: UNK
     Dates: start: 20100805, end: 20100806

REACTIONS (31)
  - CHEST WALL MASS [None]
  - ENCEPHALITIS HERPES [None]
  - DIARRHOEA [None]
  - FEBRILE NEUTROPENIA [None]
  - MEMORY IMPAIRMENT [None]
  - NAUSEA [None]
  - INFECTION [None]
  - ENTEROCOCCAL INFECTION [None]
  - EWING'S SARCOMA [None]
  - ACUTE GRAFT VERSUS HOST DISEASE IN INTESTINE [None]
  - PNEUMONIA [None]
  - DEPRESSION [None]
  - PANCREATITIS [None]
  - PAIN [None]
  - LOBAR PNEUMONIA [None]
  - PSEUDOMONAS INFECTION [None]
  - HYPONATRAEMIA [None]
  - RADIATION PNEUMONITIS [None]
  - INSOMNIA [None]
  - RENAL IMPAIRMENT [None]
  - HEPATIC FUNCTION ABNORMAL [None]
  - DECREASED APPETITE [None]
  - BONE MARROW FAILURE [None]
  - INFECTIOUS PERITONITIS [None]
  - LUNG NEOPLASM [None]
  - CANDIDIASIS [None]
  - ACUTE GRAFT VERSUS HOST DISEASE IN SKIN [None]
  - GRAFT VERSUS HOST DISEASE IN INTESTINE [None]
  - GRAFT VERSUS HOST DISEASE IN SKIN [None]
  - URINARY RETENTION [None]
  - MELAENA [None]
